FAERS Safety Report 10671481 (Version 2)
Quarter: 2015Q1

REPORT INFORMATION
  Report Type: Spontaneous
  Country: IT (occurrence: IT)
  Receive Date: 20141223
  Receipt Date: 20150219
  Transmission Date: 20150720
  Serious: Yes (Other)
  Sender: FDA-Public Use
  Company Number: IT-CELGENE-ITA-2014123484

PATIENT

DRUGS (6)
  1. REVLIMID [Suspect]
     Active Substance: LENALIDOMIDE
     Route: 048
  2. DEXAMETHASONE. [Concomitant]
     Active Substance: DEXAMETHASONE
     Route: 065
  3. DEXAMETHASONE. [Concomitant]
     Active Substance: DEXAMETHASONE
     Indication: PLASMA CELL MYELOMA
     Route: 065
  4. REVLIMID [Suspect]
     Active Substance: LENALIDOMIDE
     Route: 048
  5. REVLIMID [Suspect]
     Active Substance: LENALIDOMIDE
     Indication: PLASMA CELL MYELOMA
     Route: 048
  6. REVLIMID [Suspect]
     Active Substance: LENALIDOMIDE
     Route: 048

REACTIONS (16)
  - Deep vein thrombosis [Unknown]
  - Drug eruption [Unknown]
  - Anaemia [Unknown]
  - Fatigue [Unknown]
  - Neuropathy peripheral [Unknown]
  - Rash papular [Unknown]
  - Gastric cancer [Unknown]
  - Atrial fibrillation [Unknown]
  - Angina pectoris [Unknown]
  - Myocardial ischaemia [Unknown]
  - Infection [Unknown]
  - Plasma cell myeloma [Unknown]
  - Neutropenia [Unknown]
  - Erythema [Unknown]
  - Thrombocytopenia [Unknown]
  - Pruritus [Unknown]
